FAERS Safety Report 20939000 (Version 1)
Quarter: 2022Q2

REPORT INFORMATION
  Report Type: Spontaneous
  Country: ES (occurrence: ES)
  Receive Date: 20220609
  Receipt Date: 20220609
  Transmission Date: 20220720
  Serious: Yes (Death, Other)
  Sender: FDA-Public Use
  Company Number: ES-PFIZER INC-202200758444

PATIENT
  Sex: Female

DRUGS (2)
  1. PEMBROLIZUMAB [Suspect]
     Active Substance: PEMBROLIZUMAB
     Indication: Sarcomatoid carcinoma
     Dosage: 400 MG, CYCLIC; EVERY SIX WEEKS
     Dates: start: 20191217
  2. INLYTA [Suspect]
     Active Substance: AXITINIB
     Indication: Sarcomatoid carcinoma
     Dosage: 10 MILLIGRAM, QD (5 MG, 2X/DAY; TWICE DAILY)
     Dates: start: 20191217

REACTIONS (3)
  - Death [Fatal]
  - Neoplasm progression [Unknown]
  - Off label use [Unknown]

NARRATIVE: CASE EVENT DATE: 20191217
